FAERS Safety Report 4806241-3 (Version None)
Quarter: 2005Q4

REPORT INFORMATION
  Report Type: 
  Country: None (occurrence: None)
  Receive Date: 20051021
  Receipt Date: 20050923
  Transmission Date: 20060501
  Serious: Yes (Hospitalization)
  Sender: FDA-Public Use
  Company Number: 2005CG01582

PATIENT
  Sex: Female

DRUGS (5)
  1. ARIMIDEX [Suspect]
     Indication: BREAST CANCER
     Route: 048
     Dates: start: 20050418, end: 20050513
  2. ARIMIDEX [Suspect]
     Route: 048
     Dates: start: 20050526, end: 20050610
  3. ESIDRIX [Suspect]
     Indication: MALIGNANT HYPERTENSION
     Route: 048
     Dates: start: 20050527, end: 20050609
  4. AMLOR [Suspect]
     Indication: MALIGNANT HYPERTENSION
     Route: 048
     Dates: start: 20050527, end: 20050610
  5. AUGMENTIN '125' [Suspect]
     Indication: BRONCHOPNEUMOPATHY
     Dates: start: 20050518, end: 20050526

REACTIONS (3)
  - ANAEMIA [None]
  - LEUKOPENIA [None]
  - THROMBOCYTOPENIA [None]
